FAERS Safety Report 5832640-7 (Version None)
Quarter: 2008Q3

REPORT INFORMATION
  Report Type: 
  Country: None (occurrence: None)
  Receive Date: 20080804
  Receipt Date: 20080725
  Transmission Date: 20090109
  Serious: Yes (Other)
  Sender: FDA-Public Use
  Company Number: PHEH2008US06656

PATIENT
  Age: 67 Year
  Sex: Female
  Weight: 74.83 kg

DRUGS (3)
  1. TEKTURNA [Suspect]
     Indication: HYPERTENSION
     Dosage: 150 MG, QD
     Dates: start: 20080723, end: 20080723
  2. CLONIDINE [Concomitant]
  3. LEVOXYL [Concomitant]
     Indication: HYPOTHYROIDISM

REACTIONS (5)
  - CHEST PAIN [None]
  - DIARRHOEA [None]
  - MALAISE [None]
  - PARAESTHESIA [None]
  - SYNCOPE [None]
